FAERS Safety Report 15378217 (Version 1)
Quarter: 2018Q3

REPORT INFORMATION
  Report Type: Spontaneous
  Country: JP (occurrence: JP)
  Receive Date: 20180913
  Receipt Date: 20180913
  Transmission Date: 20181010
  Serious: Yes (Other)
  Sender: FDA-Public Use
  Company Number: JP-PFIZER INC-2018364077

PATIENT
  Age: 75 Year
  Sex: Male

DRUGS (2)
  1. PRECEDEX [Suspect]
     Active Substance: DEXMEDETOMIDINE HYDROCHLORIDE
     Dosage: 0.4 UG/KG/HR(MAINTENANCE DOSE)
     Route: 041
     Dates: start: 20180523, end: 20180523
  2. PRECEDEX [Suspect]
     Active Substance: DEXMEDETOMIDINE HYDROCHLORIDE
     Indication: PROPHYLAXIS
     Dosage: 4 UG/KG/HR(LOADING DOSE)
     Route: 041
     Dates: start: 20180523, end: 20180523

REACTIONS (1)
  - Anaphylactic reaction [Recovered/Resolved]
